FAERS Safety Report 12771714 (Version 2)
Quarter: 2016Q3

REPORT INFORMATION
  Report Type: Spontaneous
  Country: FR (occurrence: FR)
  Receive Date: 20160922
  Receipt Date: 20160930
  Transmission Date: 20161109
  Serious: Yes (Hospitalization, Disabling)
  Sender: FDA-Public Use
  Company Number: FR-PFIZER INC-2016434941

PATIENT
  Age: 59 Year
  Sex: Male

DRUGS (19)
  1. TRACLEER [Suspect]
     Active Substance: BOSENTAN
     Dosage: 62.5 MG, 2X/DAY IN THE MORNING AND IN THE EVENING
     Route: 048
     Dates: start: 20150729
  2. CONTRAMAL [Concomitant]
     Active Substance: TRAMADOL HYDROCHLORIDE
     Dosage: 50 MG, AS NEEDED
     Route: 048
  3. ALIMTA [Concomitant]
     Active Substance: PEMETREXED DISODIUM
     Indication: NON-SMALL CELL LUNG CANCER METASTATIC
     Dosage: 1ST CYCLE
     Dates: start: 20150924
  4. TRACLEER [Suspect]
     Active Substance: BOSENTAN
     Dosage: 125 MG, 2X/DAY IN THE MORNING AND IN THE EVENING
     Route: 048
     Dates: start: 20150909, end: 20151101
  5. STILNOX [Concomitant]
     Active Substance: ZOLPIDEM TARTRATE
     Dosage: 1 DF OF 10 MG, 1X/DAY DURING THE NIGHT
     Route: 048
  6. FOLIC ACID. [Concomitant]
     Active Substance: FOLIC ACID
     Dosage: 1 DF OF 0.4 MG, 1X/DAY IN THE MORNING
     Route: 048
  7. CONTRAMAL LP [Concomitant]
     Active Substance: TRAMADOL HYDROCHLORIDE
     Dosage: 1 DF OF 100 MG, 2X/DAY
     Route: 048
  8. ALDACTONE [Suspect]
     Active Substance: SPIRONOLACTONE
     Dosage: 1 DF OF 50 MG, 1X/DAY IN THE MORNING
     Route: 048
     Dates: start: 201503
  9. LEVOTHYROX [Concomitant]
     Active Substance: LEVOTHYROXINE
     Dosage: 1 DF OF 150 UG, 1X/DAY IN THE MORNING
     Route: 048
  10. ALPRAZOLAM. [Concomitant]
     Active Substance: ALPRAZOLAM
     Dosage: 1 DF OF 0.50 MG, 2X/DAY IN THE MORNING AND IN THE EVENING
     Route: 048
  11. DIFFU K [Concomitant]
     Active Substance: POTASSIUM CHLORIDE
     Dosage: 2 DF OF 600 MG, 3X/DAY IN THE MORNING, AT NOON, AND IN THE EVENING
     Route: 048
  12. XGEVA [Concomitant]
     Active Substance: DENOSUMAB
     Dosage: 1 DF, MONTHLY
     Route: 058
  13. ALIMTA [Concomitant]
     Active Substance: PEMETREXED DISODIUM
     Dosage: 2ND CYCLE
     Dates: start: 20151022
  14. PERINDOPRIL [Suspect]
     Active Substance: PERINDOPRIL
     Dosage: 1 DF OF 4 MG, 1X/DAY IN THE MORNING
     Route: 048
     Dates: start: 201503
  15. TRACLEER [Suspect]
     Active Substance: BOSENTAN
     Indication: PULMONARY HYPERTENSION
     Dosage: 32 MG, 2X/DAY IN THE MORNING AND IN THE EVENING
     Route: 048
     Dates: start: 20150630
  16. ADCIRCA [Suspect]
     Active Substance: TADALAFIL
     Indication: PULMONARY HYPERTENSION
     Dosage: 20 MG, 1X/DAY IN THE MORNING
     Route: 048
     Dates: start: 20150826, end: 20151101
  17. LASILIX SPECIAL /00032601/ [Concomitant]
     Active Substance: FUROSEMIDE
     Dosage: 1 DF OF 500 MG, 2X/DAY IN THE MORNING AND AT NOON
     Route: 048
  18. CACIT D3 [Concomitant]
     Active Substance: CALCIUM\CHOLECALCIFEROL
     Dosage: 1 DF, 1X/DAY
     Route: 048
  19. LASILIX SPECIAL /00032601/ [Concomitant]
     Active Substance: FUROSEMIDE
     Dosage: 1 DF OF 500 MG, IN THE MORNING, 250 MG AT NOON, AND 500 MG IN THE EVENING
     Dates: start: 20150916

REACTIONS (1)
  - Optic nerve disorder [Not Recovered/Not Resolved]

NARRATIVE: CASE EVENT DATE: 2015
